FAERS Safety Report 4480985-8 (Version None)
Quarter: 2004Q4

REPORT INFORMATION
  Report Type: 
  Country: None (occurrence: None)
  Receive Date: 20041019
  Receipt Date: 20041019
  Transmission Date: 20050328
  Serious: Yes (Hospitalization)
  Sender: FDA-Public Use
  Company Number: None

PATIENT
  Age: 63 Year
  Sex: Male
  Weight: 68.0396 kg

DRUGS (2)
  1. TAXOL [Suspect]
     Indication: SMALL CELL LUNG CANCER STAGE UNSPECIFIED
     Dosage: 75 MG/M2 D1-8 IV
     Route: 042
     Dates: start: 20040513, end: 20040923
  2. IRINOTECAN HCL [Suspect]
     Indication: SMALL CELL LUNG CANCER STAGE UNSPECIFIED
     Dosage: 50 MG /M2 DAY 1 + 8 IV
     Route: 042
     Dates: start: 20040513, end: 20040923

REACTIONS (1)
  - PNEUMONIA [None]
